FAERS Safety Report 10195074 (Version 1)
Quarter: 2014Q2

REPORT INFORMATION
  Report Type: Spontaneous
  Country: CN (occurrence: CN)
  Receive Date: 20140526
  Receipt Date: 20140526
  Transmission Date: 20141212
  Serious: Yes (Other)
  Sender: FDA-Public Use
  Company Number: CN-PFIZER INC-2014140655

PATIENT
  Age: 53 Year
  Sex: Female
  Weight: 61 kg

DRUGS (3)
  1. PHARMORUBICIN [Suspect]
     Indication: BREAST CANCER
     Dosage: 140 MG, 1X/DAY
     Route: 041
     Dates: start: 20130221, end: 20130221
  2. CYCLOPHOSPHAMIDE [Suspect]
     Indication: BREAST CANCER
     Dosage: 0.8 G, 1X/DAY
     Route: 042
     Dates: start: 20130221, end: 20130221
  3. DOCETAXEL [Suspect]
     Indication: BREAST CANCER
     Dosage: 120 MG, 1X/DAY
     Route: 041
     Dates: start: 20130221, end: 20130221

REACTIONS (4)
  - Constipation [Unknown]
  - Abdominal distension [Unknown]
  - White blood cell count decreased [Unknown]
  - Neutrophil count decreased [Unknown]
